FAERS Safety Report 8758674 (Version 2)
Quarter: 2012Q4

REPORT INFORMATION
  Report Type: 
  Country: TR (occurrence: TR)
  Receive Date: 20120829
  Receipt Date: 20121003
  Transmission Date: 20130627
  Serious: Yes (Hospitalization, Other)
  Sender: FDA-Public Use
  Company Number: TR-RANBAXY-2012RR-59244

PATIENT
  Age: 25 Year
  Sex: Male

DRUGS (4)
  1. VENLAFAXINE [Suspect]
     Indication: MAJOR DEPRESSION
     Dosage: 150 mg, qd
     Route: 065
  2. SERTRALIN [Suspect]
     Indication: MAJOR DEPRESSION
     Dosage: 50 mg, qd
     Route: 065
  3. OLANZAPIN [Suspect]
     Indication: MAJOR DEPRESSION
     Dosage: 5 mg, qd
     Route: 065
  4. MIRTAZAPINE [Suspect]
     Indication: MAJOR DEPRESSION
     Dosage: 30 mg, qd
     Route: 065

REACTIONS (2)
  - Sinus arrhythmia [Recovered/Resolved]
  - Syncope [Recovered/Resolved]
